FAERS Safety Report 7942332 (Version 6)
Quarter: 2015Q2

REPORT INFORMATION
  Report Type: Spontaneous
  Country: JP (occurrence: JP)
  Receive Date: 20110512
  Receipt Date: 20150617
  Transmission Date: 20150821
  Serious: Yes (Other)
  Sender: FDA-Public Use
  Company Number: JP-PFIZER INC-2011100446

PATIENT
  Age: 64 Year
  Sex: Male
  Weight: 56 kg

DRUGS (3)
  1. SUTENT [Suspect]
     Active Substance: SUNITINIB MALATE
     Dosage: 37.5 MG, DAILY
     Dates: start: 20110530, end: 20110804
  2. SUTENT [Suspect]
     Active Substance: SUNITINIB MALATE
     Dosage: UNK
     Dates: end: 20120327
  3. SUTENT [Suspect]
     Active Substance: SUNITINIB MALATE
     Indication: GASTROINTESTINAL STROMAL TUMOUR
     Dosage: 50 MG, 1X/DAY
     Route: 048
     Dates: start: 20110411

REACTIONS (6)
  - Gastrointestinal stromal tumour [Unknown]
  - Hypothyroidism [Recovering/Resolving]
  - Disease progression [Unknown]
  - Anal ulcer [Recovering/Resolving]
  - Thrombocytopenia [Recovering/Resolving]
  - Scrotal ulcer [Recovering/Resolving]

NARRATIVE: CASE EVENT DATE: 20110501
